FAERS Safety Report 9580634 (Version 1)
Quarter: 2013Q3

REPORT INFORMATION
  Report Type: Spontaneous
  Country: US (occurrence: None)
  Receive Date: 20130916
  Receipt Date: 20130916
  Transmission Date: 20140515
  Serious: Yes (Other)
  Sender: FDA-Public Use
  Company Number: JPI-P-033500

PATIENT
  Age: 16 Year
  Sex: Female
  Weight: 57.61 kg

DRUGS (3)
  1. XYREM (500 MILLIGRAM/MILLILITERS, SOLUTION) (SODIUM OXYBATE) [Suspect]
     Indication: CATAPLEXY
     Route: 048
     Dates: start: 20130307
  2. IMIPRAMINE [Suspect]
     Route: 048
     Dates: start: 201301
  3. IMIPRAMINE [Suspect]
     Indication: CATAPLEXY
     Route: 048
     Dates: start: 201301

REACTIONS (3)
  - Apnoea [None]
  - Hypopnoea [None]
  - Dyspnoea [None]
